FAERS Safety Report 12282677 (Version 1)
Quarter: 2016Q2

REPORT INFORMATION
  Report Type: Spontaneous
  Country: CH (occurrence: CH)
  Receive Date: 20160419
  Receipt Date: 20160419
  Transmission Date: 20160815
  Serious: Yes (Hospitalization)
  Sender: FDA-Public Use
  Company Number: CH-SUN PHARMACEUTICAL INDUSTRIES LTD-2016R1-114742

PATIENT
  Age: 91 Year
  Sex: Female

DRUGS (1)
  1. DIGOXIN. [Suspect]
     Active Substance: DIGOXIN
     Indication: ATRIAL FIBRILLATION
     Dosage: 0.25 MG, QD
     Route: 065

REACTIONS (12)
  - Vision blurred [Recovering/Resolving]
  - Disease progression [Recovering/Resolving]
  - Colour vision tests abnormal [Recovering/Resolving]
  - Nausea [Recovered/Resolved]
  - Illusion [Recovering/Resolving]
  - Photopsia [Recovering/Resolving]
  - Visual acuity reduced [Recovering/Resolving]
  - Ocular toxicity [Recovering/Resolving]
  - Toxicity to various agents [Recovering/Resolving]
  - Vomiting [Recovered/Resolved]
  - Dysphagia [Recovered/Resolved]
  - Chromatopsia [Recovering/Resolving]
